FAERS Safety Report 11718707 (Version 2)
Quarter: 2015Q4

REPORT INFORMATION
  Report Type: Spontaneous
  Country: CN (occurrence: CN)
  Receive Date: 20151110
  Receipt Date: 20151116
  Transmission Date: 20160304
  Serious: Yes (Hospitalization)
  Sender: FDA-Public Use
  Company Number: CN-009507513-1511CHN004373

PATIENT
  Age: 63 Year
  Sex: Female
  Weight: 55 kg

DRUGS (3)
  1. LEVOCARNITINE. [Suspect]
     Active Substance: LEVOCARNITINE
     Indication: NUTRITIONAL SUPPLEMENTATION
     Dosage: 4 G, QD
     Route: 041
     Dates: start: 20150515, end: 20150524
  2. PANTOPRAZOLE SODIUM. [Suspect]
     Active Substance: PANTOPRAZOLE SODIUM
     Indication: PROPHYLAXIS AGAINST GASTROINTESTINAL ULCER
     Dosage: 40 MG, QD
     Route: 041
     Dates: start: 20150517, end: 20150524
  3. IMIPENEM AND CILASTATIN [Suspect]
     Active Substance: CILASTATIN SODIUM\IMIPENEM
     Indication: INFECTION
     Dosage: 250 MG, BID
     Route: 041
     Dates: start: 20150517, end: 20150522

REACTIONS (1)
  - Epilepsy [Recovering/Resolving]

NARRATIVE: CASE EVENT DATE: 20150524
